FAERS Safety Report 16755312 (Version 3)
Quarter: 2019Q4

REPORT INFORMATION
  Report Type: Spontaneous
  Country: ZA (occurrence: ZA)
  Receive Date: 20190829
  Receipt Date: 20191022
  Transmission Date: 20200122
  Serious: Yes (Death, Other)
  Sender: FDA-Public Use
  Company Number: ZA-MYLANLABS-2019M1081011

PATIENT
  Age: 42 Year
  Sex: Male

DRUGS (17)
  1. BEDAQUILINE [Suspect]
     Active Substance: BEDAQUILINE
     Indication: TUBERCULOSIS
     Dosage: UNK
     Route: 065
     Dates: start: 20190522
  2. ETHAMBUTOL [Suspect]
     Active Substance: ETHAMBUTOL HYDROCHLORIDE
     Indication: TUBERCULOSIS
     Dosage: UNK
     Route: 065
     Dates: start: 20190522, end: 201906
  3. TERIZIDONE [Suspect]
     Active Substance: TERIZIDONE
     Indication: TUBERCULOSIS
     Dosage: UNK
     Route: 065
     Dates: start: 20190626
  4. 3TC [Concomitant]
     Active Substance: LAMIVUDINE
     Indication: RETROVIRAL INFECTION
     Dosage: UNK
  5. LINEZOLID. [Suspect]
     Active Substance: LINEZOLID
     Dosage: UNK
     Route: 065
     Dates: start: 20190627
  6. MEROPENEM. [Suspect]
     Active Substance: MEROPENEM
     Indication: PRODUCT USED FOR UNKNOWN INDICATION
     Dosage: UNK
     Route: 065
     Dates: start: 20190712
  7. LEVOFLOXACIN. [Suspect]
     Active Substance: LEVOFLOXACIN
     Indication: TUBERCULOSIS
     Dosage: UNK
     Route: 065
     Dates: start: 20190522, end: 20190626
  8. DELAMANID [Suspect]
     Active Substance: DELAMANID
     Indication: PRODUCT USED FOR UNKNOWN INDICATION
     Dosage: UNK
     Route: 065
     Dates: start: 20190712
  9. CLOFAZIMINE [Suspect]
     Active Substance: CLOFAZIMINE
     Indication: TUBERCULOSIS
     Dosage: UNK
     Route: 065
     Dates: start: 20190522
  10. PAS [Suspect]
     Active Substance: AMINOSALICYLIC ACID
     Indication: TUBERCULOSIS
     Dosage: UNK
     Route: 065
     Dates: start: 20190626
  11. PYRAZINAMIDE. [Suspect]
     Active Substance: PYRAZINAMIDE
     Indication: TUBERCULOSIS
     Dosage: UNK
     Route: 065
     Dates: start: 20190522
  12. THYROXINE [Concomitant]
     Active Substance: LEVOTHYROXINE
     Indication: HYPOTHYROIDISM
     Dosage: UNK
     Dates: start: 2019
  13. EPIRUBICIN [Suspect]
     Active Substance: EPIRUBICIN
     Indication: PRODUCT USED FOR UNKNOWN INDICATION
     Dosage: UNK
     Route: 065
     Dates: start: 2019
  14. TENOFOVIR DISOPROXIL FUMARATE. [Concomitant]
     Active Substance: TENOFOVIR DISOPROXIL FUMARATE
     Indication: RETROVIRAL INFECTION
     Dosage: UNK
  15. LINEZOLID. [Suspect]
     Active Substance: LINEZOLID
     Indication: TUBERCULOSIS
     Dosage: UNK
     Route: 065
     Dates: start: 20190522, end: 2019
  16. ISONIAZID. [Suspect]
     Active Substance: ISONIAZID
     Indication: TUBERCULOSIS
     Dosage: UNK
     Route: 065
     Dates: start: 20190522, end: 20190626
  17. ALUVIA [Concomitant]
     Active Substance: LOPINAVIR\RITONAVIR
     Indication: RETROVIRAL INFECTION
     Dosage: UNK

REACTIONS (4)
  - Tuberculosis [Fatal]
  - HIV infection [Fatal]
  - Cerebrovascular accident [Fatal]
  - Cerebrovascular arteriovenous malformation [Fatal]

NARRATIVE: CASE EVENT DATE: 20190624
